FAERS Safety Report 14317502 (Version 4)
Quarter: 2018Q1

REPORT INFORMATION
  Report Type: Spontaneous
  Country: DE (occurrence: DE)
  Receive Date: 20171222
  Receipt Date: 20180306
  Transmission Date: 20180509
  Serious: Yes (Other)
  Sender: FDA-Public Use
  Company Number: DE-JNJFOC-20171213636

PATIENT
  Age: 55 Year
  Sex: Female
  Weight: 70 kg

DRUGS (12)
  1. PROPOFOL. [Concomitant]
     Active Substance: PROPOFOL
     Route: 042
  2. SEVOFLURANE. [Concomitant]
     Active Substance: SEVOFLURANE
     Route: 042
  3. TRAMADOL HYDROCHLORIDE. [Suspect]
     Active Substance: TRAMADOL HYDROCHLORIDE
     Indication: KNEE OPERATION
     Route: 048
     Dates: start: 20170516, end: 20170517
  4. AKRINOR [Concomitant]
     Active Substance: CAFEDRINE HYDROCHLORIDE\THEODRENALINE
     Route: 042
  5. FRAGMIN [Suspect]
     Active Substance: DALTEPARIN SODIUM
     Indication: KNEE OPERATION
     Route: 048
     Dates: start: 20171116, end: 20171119
  6. PARACETAMOL [Suspect]
     Active Substance: ACETAMINOPHEN
     Indication: KNEE OPERATION
     Route: 065
     Dates: start: 20170516, end: 20170517
  7. FENTANYL CITRATE. [Concomitant]
     Active Substance: FENTANYL CITRATE
     Route: 042
  8. PANTOZOL [Suspect]
     Active Substance: PANTOPRAZOLE SODIUM
     Indication: KNEE OPERATION
     Route: 065
     Dates: start: 20170516, end: 20170517
  9. DIPIDOLOR [Concomitant]
     Active Substance: PIRITRAMIDE
     Route: 042
  10. FRAGMIN [Suspect]
     Active Substance: DALTEPARIN SODIUM
     Indication: KNEE OPERATION
     Route: 048
     Dates: start: 201705, end: 2017
  11. FRAGMIN [Suspect]
     Active Substance: DALTEPARIN SODIUM
     Indication: THROMBOSIS PROPHYLAXIS
     Route: 048
     Dates: start: 201705, end: 2017
  12. FRAGMIN [Suspect]
     Active Substance: DALTEPARIN SODIUM
     Indication: THROMBOSIS PROPHYLAXIS
     Route: 048
     Dates: start: 20171116, end: 20171119

REACTIONS (15)
  - Bedridden [Recovered/Resolved]
  - Nausea [Recovered/Resolved]
  - Vomiting [Recovered/Resolved]
  - Cardiovascular disorder [Recovered/Resolved]
  - Intestinal dilatation [Recovered/Resolved]
  - Conjunctivitis [Recovered/Resolved]
  - Pallor [Recovered/Resolved]
  - Angioedema [Recovered/Resolved]
  - Cough [Recovered/Resolved]
  - Nasopharyngitis [Recovered/Resolved]
  - Joint swelling [Recovered/Resolved]
  - Asthenia [Recovered/Resolved]
  - Condition aggravated [Recovered/Resolved]
  - Bronchitis [Recovered/Resolved]
  - Muscle spasms [Recovered/Resolved]

NARRATIVE: CASE EVENT DATE: 20170516
